FAERS Safety Report 4597327-X (Version None)
Quarter: 2005Q1

REPORT INFORMATION
  Report Type: 
  Country: None (occurrence: None)
  Receive Date: 20050225
  Receipt Date: 20050225
  Transmission Date: 20050727
  Serious: Yes (Other)
  Sender: FDA-Public Use
  Company Number: None

PATIENT
  Sex: Female
  Weight: 52.1637 kg

DRUGS (1)
  1. VICODIN [Suspect]
     Indication: TOOTHACHE
     Dosage: 1 EVERY 4 HOURS ORAL
     Route: 048
     Dates: start: 20050218, end: 20050223

REACTIONS (2)
  - HYPERSENSITIVITY [None]
  - MEDICATION ERROR [None]
